FAERS Safety Report 9181009 (Version 1)
Quarter: 2013Q1

REPORT INFORMATION
  Report Type: Spontaneous
  Country: US (occurrence: None)
  Receive Date: 20130320
  Receipt Date: 20130320
  Transmission Date: 20140127
  Serious: Yes (Hospitalization, Other)
  Sender: FDA-Public Use
  Company Number: SPI201300162

PATIENT
  Sex: Male

DRUGS (1)
  1. AMITIZA [Suspect]
     Indication: CONSTIPATION

REACTIONS (5)
  - Diarrhoea [None]
  - Drug ineffective [None]
  - Product quality issue [None]
  - Diarrhoea [None]
  - Fall [None]
